FAERS Safety Report 8968881 (Version 1)
Quarter: 2012Q4

REPORT INFORMATION
  Report Type: Spontaneous
  Country: FR (occurrence: None)
  Receive Date: 20121207
  Receipt Date: 20121207
  Transmission Date: 20130627
  Serious: Yes (Hospitalization)
  Sender: FDA-Public Use
  Company Number: DSA_61254_2012

PATIENT
  Age: 57 Year
  Sex: Male

DRUGS (3)
  1. FLAGYL [Suspect]
     Indication: PRODUCT USED FOR UNKNOWN INDICATION
  2. ADVIL [Suspect]
  3. ANTIBIOTICS [Suspect]

REACTIONS (1)
  - Anaphylactic shock [None]
